FAERS Safety Report 11638056 (Version 2)
Quarter: 2016Q1

REPORT INFORMATION
  Report Type: Spontaneous
  Country: US (occurrence: US)
  Receive Date: 20151016
  Receipt Date: 20160106
  Transmission Date: 20160525
  Serious: No
  Sender: FDA-Public Use
  Company Number: US-PFIZER INC-2015345343

PATIENT
  Age: 73 Year
  Sex: Female
  Weight: 52 kg

DRUGS (2)
  1. NICOTROL [Suspect]
     Active Substance: NICOTINE
     Indication: SMOKING CESSATION THERAPY
     Dosage: 6-12 CARTRIDGES AS DIRECTED, AS NEEDED, USED ABOUT 6 PER DAY
     Dates: start: 200806, end: 201504
  2. NICOTROL [Suspect]
     Active Substance: NICOTINE
     Dosage: 6-12 CARTRIDGES AS DIRECTED, AS NEEDED, USED ABOUT 6 PER DAY

REACTIONS (5)
  - Device failure [Recovered/Resolved]
  - Drug ineffective [Recovering/Resolving]
  - Malaise [Unknown]
  - Feeling abnormal [Unknown]
  - Nerve injury [Not Recovered/Not Resolved]
